FAERS Safety Report 4788889-8 (Version None)
Quarter: 2005Q4

REPORT INFORMATION
  Report Type: 
  Country: None (occurrence: None)
  Receive Date: 20051004
  Receipt Date: 20050922
  Transmission Date: 20060501
  Serious: Yes (Death)
  Sender: FDA-Public Use
  Company Number: R301319-PRT05T-J

PATIENT
  Age: 82 Year
  Sex: Female
  Weight: 46 kg

DRUGS (10)
  1. RABEPRAZOLE SODIUM [Suspect]
     Indication: REFLUX OESOPHAGITIS
     Dosage: 10 MG, 1 IN 1 D, ORAL
     Route: 048
     Dates: start: 20040930, end: 20050416
  2. LOSARTAN POTASSIUM [Concomitant]
  3. ASPIRIN [Concomitant]
  4. LUPRAC TORASEMIDE) [Concomitant]
  5. SENNAL (SENNOSIDE A) [Concomitant]
  6. COVERSYL (PERINDOPRIL) [Concomitant]
  7. FERROMIA (FERROUS CITRATE) [Concomitant]
  8. EBRANTIL (URAPIDIL) [Concomitant]
  9. UBRETID (DISTIGMINE BROMIDE) [Concomitant]
  10. NORTRIPTYLINE HCL [Concomitant]

REACTIONS (1)
  - AORTIC ANEURYSM RUPTURE [None]
